FAERS Safety Report 20146799 (Version 4)
Quarter: 2023Q1

REPORT INFORMATION
  Report Type: Spontaneous
  Country: US (occurrence: US)
  Receive Date: 20211203
  Receipt Date: 20230329
  Transmission Date: 20230417
  Serious: Yes (Other)
  Sender: FDA-Public Use
  Company Number: US-GILEAD-2021-0558282

PATIENT
  Age: 45 Year
  Sex: Female

DRUGS (35)
  1. VIREAD [Suspect]
     Active Substance: TENOFOVIR DISOPROXIL FUMARATE
     Indication: HIV infection
     Dosage: UNK
     Route: 048
     Dates: start: 20120101, end: 20181231
  2. VIREAD [Suspect]
     Active Substance: TENOFOVIR DISOPROXIL FUMARATE
     Dosage: UNK
     Route: 048
     Dates: start: 20020101, end: 20181231
  3. TRUVADA [Suspect]
     Active Substance: EMTRICITABINE\TENOFOVIR DISOPROXIL FUMARATE
     Indication: HIV infection
     Dosage: UNK
     Route: 048
     Dates: start: 20040803, end: 20181231
  4. TRUVADA [Suspect]
     Active Substance: EMTRICITABINE\TENOFOVIR DISOPROXIL FUMARATE
     Dosage: UNK
     Route: 048
     Dates: start: 2011, end: 20191230
  5. SYMTUZA [Concomitant]
     Active Substance: COBICISTAT\DARUNAVIR\EMTRICITABINE\TENOFOVIR ALAFENAMIDE
  6. PREZCOBIX [Concomitant]
     Active Substance: COBICISTAT\DARUNAVIR ETHANOLATE
  7. TIVICAY [Concomitant]
     Active Substance: DOLUTEGRAVIR SODIUM
  8. ATROVENT [Concomitant]
     Active Substance: IPRATROPIUM BROMIDE
  9. BENZONATATE [Concomitant]
     Active Substance: BENZONATATE
  10. CEFDINIR [Concomitant]
     Active Substance: CEFDINIR
  11. CHANTIX [Concomitant]
     Active Substance: VARENICLINE TARTRATE
  12. CODEINE [Concomitant]
     Active Substance: CODEINE
  13. CYCLOBENZAPRINE [Concomitant]
     Active Substance: CYCLOBENZAPRINE
  14. DOXYCYCLINE [Concomitant]
     Active Substance: DOXYCYCLINE
  15. EGRIFTA [Concomitant]
     Active Substance: TESAMORELIN ACETATE
  16. FOLIC ACID [Concomitant]
     Active Substance: FOLIC ACID
  17. HYDROCODONE BITARTRATE AND ACETAMINOPHEN [Concomitant]
     Active Substance: ACETAMINOPHEN\HYDROCODONE BITARTRATE
  18. IPRATROPIUM BROMIDE [Concomitant]
     Active Substance: IPRATROPIUM BROMIDE
  19. LEVOFLOXACIN [Concomitant]
     Active Substance: LEVOFLOXACIN
  20. MELOXICAM [Concomitant]
     Active Substance: MELOXICAM
  21. NORCO [Concomitant]
     Active Substance: ACETAMINOPHEN\HYDROCODONE BITARTRATE
  22. PREDNISONE [Concomitant]
     Active Substance: PREDNISONE
  23. PROAIR HFA [Concomitant]
     Active Substance: ALBUTEROL SULFATE
  24. PROMETHAZINE [Concomitant]
     Active Substance: PROMETHAZINE HYDROCHLORIDE
  25. TIOTROPIUM BROMIDE [Concomitant]
     Active Substance: TIOTROPIUM BROMIDE
  26. SYMBICORT [Concomitant]
     Active Substance: BUDESONIDE\FORMOTEROL FUMARATE DIHYDRATE
  27. WELLBUTRIN [Concomitant]
     Active Substance: BUPROPION HYDROCHLORIDE
  28. GABAPENTIN [Concomitant]
     Active Substance: GABAPENTIN
  29. LYRICA [Concomitant]
     Active Substance: PREGABALIN
  30. OMEPRAZOLE [Concomitant]
     Active Substance: OMEPRAZOLE
  31. TRAMADOL [Concomitant]
     Active Substance: TRAMADOL
  32. BUSPIRONE [Concomitant]
     Active Substance: BUSPIRONE HYDROCHLORIDE
  33. ALBUTEROL SULFATE [Concomitant]
     Active Substance: ALBUTEROL SULFATE
  34. SOMA COMPOUND [Concomitant]
     Active Substance: ASPIRIN\CARISOPRODOL
  35. TESSALON [Concomitant]
     Active Substance: BENZONATATE

REACTIONS (15)
  - Osteoporosis [Unknown]
  - Multiple fractures [Not Recovered/Not Resolved]
  - Foot fracture [Unknown]
  - Rib fracture [Unknown]
  - Bone density decreased [Not Recovered/Not Resolved]
  - Osteopenia [Not Recovered/Not Resolved]
  - Bone demineralisation [Unknown]
  - Pain [Not Recovered/Not Resolved]
  - Emotional distress [Not Recovered/Not Resolved]
  - Anxiety [Not Recovered/Not Resolved]
  - Anhedonia [Not Recovered/Not Resolved]
  - Economic problem [Not Recovered/Not Resolved]
  - Osteopenia [Not Recovered/Not Resolved]
  - Dysstasia [Not Recovered/Not Resolved]
  - Gait disturbance [Not Recovered/Not Resolved]

NARRATIVE: CASE EVENT DATE: 20070101
